FAERS Safety Report 11965191 (Version 2)
Quarter: 2016Q1

REPORT INFORMATION
  Report Type: Report from Study
  Country: ES (occurrence: ES)
  Receive Date: 20160127
  Receipt Date: 20160212
  Transmission Date: 20160526
  Serious: Yes (Other)
  Sender: FDA-Public Use
  Company Number: ES-AMGEN-ESPSL2016006294

PATIENT
  Age: 73 Year
  Sex: Female
  Weight: 101 kg

DRUGS (8)
  1. HYDRAPRESS [Concomitant]
     Dosage: 50 MG, TID
     Dates: start: 20151026
  2. FERPLEX [Concomitant]
     Dosage: 40 MG, UNK
     Dates: start: 20151026
  3. BISOPROLOL [Concomitant]
     Active Substance: BISOPROLOL
     Dosage: 5 MG, BID
     Dates: start: 20151026
  4. ALLOPURINOL. [Concomitant]
     Active Substance: ALLOPURINOL
     Dosage: 300 MG, 1/2 QD
     Dates: start: 20151026
  5. TRYPTIZOL [Concomitant]
     Active Substance: AMITRIPTYLINE HYDROCHLORIDE
     Dosage: UNK, TID
     Dates: start: 20151026
  6. ATORVASTATIN [Concomitant]
     Active Substance: ATORVASTATIN
     Dosage: 20 MG, QD
     Dates: start: 20151026
  7. OMEPRAZOL                          /00661201/ [Concomitant]
     Active Substance: OMEPRAZOLE
     Dosage: 20 MG, QD
     Dates: start: 20151026
  8. ARANESP [Suspect]
     Active Substance: DARBEPOETIN ALFA
     Indication: RENAL FAILURE
     Dosage: 60 MUG, EVERY 15 DAYS
     Route: 058
     Dates: start: 20151026

REACTIONS (2)
  - Nephropathy [Unknown]
  - Dialysis [Unknown]
